FAERS Safety Report 8212960-1 (Version None)
Quarter: 2012Q1

REPORT INFORMATION
  Report Type: 
  Country: None (occurrence: None)
  Receive Date: 20120315
  Receipt Date: 20120312
  Transmission Date: 20120608
  Serious: Yes (Other)
  Sender: FDA-Public Use
  Company Number: US-PFIZER INC-2012065775

PATIENT
  Sex: Male

DRUGS (4)
  1. LIPITOR [Suspect]
     Dosage: 10 MG, 1X/DAY
  2. NORVASC [Suspect]
     Dosage: 10 MG, 1X/DAY
  3. ACCUPRIL [Suspect]
     Dosage: 20 MG, 2X/DAY
  4. NEURONTIN [Suspect]
     Dosage: 100 MG, 3X/DAY

REACTIONS (1)
  - CEREBROVASCULAR ACCIDENT [None]
